FAERS Safety Report 14623650 (Version 1)
Quarter: 2018Q1

REPORT INFORMATION
  Report Type: Spontaneous
  Country: US (occurrence: US)
  Receive Date: 20180309
  Receipt Date: 20180309
  Transmission Date: 20180509
  Serious: Yes (Other)
  Sender: FDA-Public Use
  Company Number: None

PATIENT
  Age: 10 Year
  Sex: Male
  Weight: 40.37 kg

DRUGS (1)
  1. GUANFACINE ER 3MG [Suspect]
     Active Substance: GUANFACINE
     Indication: ATTENTION DEFICIT/HYPERACTIVITY DISORDER
     Route: 048
     Dates: start: 20171218, end: 20180302

REACTIONS (6)
  - Impulse-control disorder [None]
  - Drug effect decreased [None]
  - Therapeutic response shortened [None]
  - Product substitution issue [None]
  - Fatigue [None]
  - Aggression [None]

NARRATIVE: CASE EVENT DATE: 20171208
